FAERS Safety Report 9009842 (Version 1)
Quarter: 2013Q1

REPORT INFORMATION
  Report Type: Spontaneous
  Country: US (occurrence: US)
  Receive Date: 20130110
  Receipt Date: 20130110
  Transmission Date: 20140127
  Serious: Yes (Death)
  Sender: FDA-Public Use
  Company Number: US-PFIZER INC-2013004862

PATIENT
  Age: 19 Year
  Sex: Male

DRUGS (2)
  1. MORPHINE SULFATE [Suspect]
     Dosage: UNK
  2. METHAMPHETAMINE [Suspect]
     Dosage: UNK

REACTIONS (1)
  - Drug abuse [Fatal]
